FAERS Safety Report 4883644-2 (Version None)
Quarter: 2006Q1

REPORT INFORMATION
  Report Type: 
  Country: None (occurrence: None)
  Receive Date: 20060113
  Receipt Date: 20051229
  Transmission Date: 20060701
  Serious: Yes (Hospitalization)
  Sender: FDA-Public Use
  Company Number: US200512001146

PATIENT
  Age: 81 Year
  Sex: Female

DRUGS (2)
  1. FORTEO [Suspect]
     Indication: OSTEOPOROSIS
     Dates: start: 20050101
  2. FORTO PEN (FORTEO PEN) PEN DISPOSABLE [Concomitant]

REACTIONS (2)
  - ACCIDENT [None]
  - PHARMACEUTICAL PRODUCT COMPLAINT [None]
